FAERS Safety Report 8219214-8 (Version None)
Quarter: 2012Q1

REPORT INFORMATION
  Report Type: 
  Country: None (occurrence: None)
  Receive Date: 20120319
  Receipt Date: 20120306
  Transmission Date: 20120608
  Serious: Yes (Other)
  Sender: FDA-Public Use
  Company Number: US-PFIZER INC-2012039360

PATIENT
  Sex: Female

DRUGS (2)
  1. NORGESTREL AND ETHINYL ESTRADIOL [Suspect]
     Indication: OFF LABEL USE
  2. NORGESTREL AND ETHINYL ESTRADIOL [Suspect]
     Indication: OVARIAN CYST

REACTIONS (3)
  - OVARIAN CYST RUPTURED [None]
  - PRODUCT QUALITY ISSUE [None]
  - OVARIAN CYST [None]
